FAERS Safety Report 23895172 (Version 1)
Quarter: 2024Q2

REPORT INFORMATION
  Report Type: Report from Study
  Country: IT (occurrence: IT)
  Receive Date: 20240524
  Receipt Date: 20240524
  Transmission Date: 20240716
  Serious: Yes (Hospitalization)
  Sender: FDA-Public Use
  Company Number: IT-UCBSA-2024015831

PATIENT
  Sex: Female

DRUGS (1)
  1. NEUPRO [Suspect]
     Active Substance: ROTIGOTINE
     Indication: Parkinson^s disease
     Dosage: 6MG/24H 28 TRANSDERMAL PATCHES
     Route: 062

REACTIONS (4)
  - Blood pressure abnormal [Unknown]
  - Diplopia [Unknown]
  - Fatigue [Unknown]
  - Somnolence [Unknown]
